FAERS Safety Report 18819284 (Version 6)
Quarter: 2021Q2

REPORT INFORMATION
  Report Type: Report from Study
  Country: US (occurrence: US)
  Receive Date: 20210201
  Receipt Date: 20210525
  Transmission Date: 20210717
  Serious: No
  Sender: FDA-Public Use
  Company Number: NVSC2021US015526

PATIENT
  Sex: Female

DRUGS (2)
  1. COSENTYX [Suspect]
     Active Substance: SECUKINUMAB
     Indication: PSORIASIS
     Dosage: UNK, QW, BENEATH THE SKIN, USUALLY VIA INJECTION
     Route: 058
  2. COSENTYX [Suspect]
     Active Substance: SECUKINUMAB
     Indication: PSORIATIC ARTHROPATHY
     Route: 058

REACTIONS (6)
  - Hypoaesthesia [Unknown]
  - Fatigue [Unknown]
  - Hand deformity [Unknown]
  - Blister [Not Recovered/Not Resolved]
  - Arthralgia [Recovering/Resolving]
  - Incorrect route of product administration [Unknown]
